FAERS Safety Report 8492454-9 (Version None)
Quarter: 2012Q3

REPORT INFORMATION
  Report Type: 
  Country: None (occurrence: None)
  Receive Date: 20120706
  Receipt Date: 20120623
  Transmission Date: 20120928
  Serious: Yes (Hospitalization)
  Sender: FDA-Public Use
  Company Number: US-ROCHE-1077705

PATIENT
  Age: 67 Year
  Sex: Female
  Weight: 88.1 kg

DRUGS (3)
  1. GDC-0980 (PI3K/MTOR INHIBITOR) [Suspect]
     Indication: BREAST CANCER METASTATIC
     Dosage: DOSE OF LAST DRUG TAKEN:20MG, LAST DOSE TAKEN ON:13/JUN/2012
     Route: 048
     Dates: start: 20120516
  2. AVASTIN [Suspect]
     Indication: BREAST CANCER METASTATIC
     Dosage: DOSE OF LAST DRUG TAKEN:10MG, LAST DOSE TAKEN ON:13/JUN/2012
     Route: 042
     Dates: start: 20120516
  3. PACLITAXEL [Suspect]
     Indication: BREAST CANCER METASTATIC
     Dosage: DOSE OF LAST DOSE DRUG TAKEN:90MG, LAST DOSE TAKEN ON:13/JUN/2012
     Route: 042
     Dates: start: 20120516

REACTIONS (4)
  - HYPOTENSION [None]
  - DIARRHOEA [None]
  - MYOCARDIAL INFARCTION [None]
  - BLOOD CREATININE INCREASED [None]
